FAERS Safety Report 17953477 (Version 3)
Quarter: 2020Q3

REPORT INFORMATION
  Report Type: Report from Study
  Country: HN (occurrence: HN)
  Receive Date: 20200628
  Receipt Date: 20200806
  Transmission Date: 20201103
  Serious: Yes (Other)
  Sender: FDA-Public Use
  Company Number: NVSC2020HN182039

PATIENT
  Age: 49 Year
  Sex: Male
  Weight: 88.45 kg

DRUGS (5)
  1. FUROSEMIDE. [Concomitant]
     Active Substance: FUROSEMIDE
     Dosage: 40 MG, BID
     Route: 048
     Dates: start: 202004
  2. VYMADA [Suspect]
     Active Substance: SACUBITRIL\VALSARTAN
     Indication: HYPERTENSION
     Dosage: 2 DF, QD  (2 OF 400MG) 2 TABLETS DAILY
     Route: 065
     Dates: start: 201803, end: 202001
  3. CARVEDILOL. [Suspect]
     Active Substance: CARVEDILOL
     Indication: HYPERTENSION
     Dosage: 1 DF, QD (SINCE 8 YEARS AGO)
     Route: 048
  4. FUROSEMIDE. [Concomitant]
     Active Substance: FUROSEMIDE
     Indication: DIURETIC THERAPY
     Dosage: 40 MG, BID
     Route: 048
     Dates: start: 2015, end: 202001
  5. VYMADA [Suspect]
     Active Substance: SACUBITRIL\VALSARTAN
     Indication: CARDIAC FAILURE
     Dosage: 2 DF, QD  (2 OF 400MG) 2 TABLETS DAILY
     Route: 048
     Dates: start: 202004

REACTIONS (7)
  - Oedema peripheral [Recovered/Resolved]
  - Weight increased [Unknown]
  - Peripheral swelling [Recovered/Resolved]
  - Dyspnoea [Recovering/Resolving]
  - Cerebrovascular accident [Unknown]
  - Hypoaesthesia [Unknown]
  - Product use in unapproved indication [Unknown]

NARRATIVE: CASE EVENT DATE: 20200616
